FAERS Safety Report 12876056 (Version 2)
Quarter: 2017Q1

REPORT INFORMATION
  Report Type: Spontaneous
  Country: US (occurrence: US)
  Receive Date: 20161024
  Receipt Date: 20170208
  Transmission Date: 20170428
  Serious: No
  Sender: FDA-Public Use
  Company Number: US-JAZZ-2016-US-015485

PATIENT
  Sex: Female

DRUGS (42)
  1. ASPIRIN. [Concomitant]
     Active Substance: ASPIRIN
  2. PERCOCET [Concomitant]
     Active Substance: ACETAMINOPHEN\OXYCODONE HYDROCHLORIDE
  3. NABUMETONE. [Concomitant]
     Active Substance: NABUMETONE
  4. NAPROXEN. [Concomitant]
     Active Substance: NAPROXEN
  5. MODAFINIL. [Concomitant]
     Active Substance: MODAFINIL
  6. ZOLPIDEM [Concomitant]
     Active Substance: ZOLPIDEM\ZOLPIDEM TARTRATE
  7. ADDERALL [Concomitant]
     Active Substance: AMPHETAMINE ASPARTATE\AMPHETAMINE SULFATE\DEXTROAMPHETAMINE SACCHARATE\DEXTROAMPHETAMINE SULFATE
  8. TRAMADOL. [Concomitant]
     Active Substance: TRAMADOL
  9. BACLOFEN. [Concomitant]
     Active Substance: BACLOFEN
  10. POTASSIUM [Concomitant]
     Active Substance: POTASSIUM
  11. LEVOTHYROXINE. [Concomitant]
     Active Substance: LEVOTHYROXINE
  12. AMITIZA [Concomitant]
     Active Substance: LUBIPROSTONE
  13. LORAZEPAM. [Concomitant]
     Active Substance: LORAZEPAM
  14. CALCIUM [Concomitant]
     Active Substance: CALCIUM
  15. CLONAZEPAM. [Concomitant]
     Active Substance: CLONAZEPAM
  16. CYMBALTA [Concomitant]
     Active Substance: DULOXETINE HYDROCHLORIDE
  17. NUVIGIL [Concomitant]
     Active Substance: ARMODAFINIL
  18. OMEPRAZOLE. [Concomitant]
     Active Substance: OMEPRAZOLE
  19. PRAMIPEXOLE DIHCL [Concomitant]
     Active Substance: PRAMIPEXOLE DIHYDROCHLORIDE
  20. MELOXICAM. [Concomitant]
     Active Substance: MELOXICAM
  21. OXCARBAZEPINE. [Concomitant]
     Active Substance: OXCARBAZEPINE
  22. FENTANYL. [Concomitant]
     Active Substance: FENTANYL
  23. XYREM [Suspect]
     Active Substance: SODIUM OXYBATE
     Dosage: 4.5 G, BID
     Route: 048
     Dates: start: 201504
  24. OXTELLAR [Concomitant]
  25. OXYCODONE AND ACETAMINOPHEN [Concomitant]
     Active Substance: ACETAMINOPHEN\OXYCODONE HYDROCHLORIDE
  26. PROAIR HFA [Concomitant]
     Active Substance: ALBUTEROL SULFATE
  27. XYREM [Suspect]
     Active Substance: SODIUM OXYBATE
     Indication: NARCOLEPSY
     Dosage: 2.25 G, BID
     Route: 048
     Dates: start: 201401, end: 201402
  28. XYREM [Suspect]
     Active Substance: SODIUM OXYBATE
     Dosage: 4 G, BID
     Route: 048
  29. NORCO [Concomitant]
     Active Substance: ACETAMINOPHEN\HYDROCODONE BITARTRATE
  30. LATUDA [Concomitant]
     Active Substance: LURASIDONE HYDROCHLORIDE
  31. OXYCODONE [Concomitant]
     Active Substance: OXYCODONE
  32. RANITIDINE. [Concomitant]
     Active Substance: RANITIDINE
  33. GABAPENTIN. [Concomitant]
     Active Substance: GABAPENTIN
  34. FERROUS FUMARATE [Concomitant]
     Active Substance: FERROUS FUMARATE
  35. XYREM [Suspect]
     Active Substance: SODIUM OXYBATE
     Dosage: DOSE ADJUSTMENTS
     Route: 048
     Dates: start: 201402, end: 201504
  36. FORTEO [Concomitant]
     Active Substance: TERIPARATIDE
  37. LEVOFLOXACIN. [Concomitant]
     Active Substance: LEVOFLOXACIN
  38. SULFAMETHOXAZOLE\TRIMETHOPRIM [Concomitant]
     Active Substance: SULFAMETHOXAZOLE\TRIMETHOPRIM
  39. MORPHINE SULFATE. [Concomitant]
     Active Substance: MORPHINE SULFATE
  40. SINEMET [Concomitant]
     Active Substance: CARBIDOPA\LEVODOPA
  41. VITAMIN B12 [Concomitant]
     Active Substance: CYANOCOBALAMIN
  42. VITAMIN D3 [Concomitant]
     Active Substance: CHOLECALCIFEROL

REACTIONS (1)
  - Treatment noncompliance [Unknown]
